FAERS Safety Report 4732766-5 (Version None)
Quarter: 2005Q3

REPORT INFORMATION
  Report Type: 
  Country: None (occurrence: None)
  Receive Date: 20050803
  Receipt Date: 20050715
  Transmission Date: 20060218
  Serious: Yes (Disabling)
  Sender: FDA-Public Use
  Company Number: GB-GLAXOSMITHKLINE-B0387829A

PATIENT
  Age: 59 Year
  Sex: Male

DRUGS (5)
  1. LAMICTAL [Suspect]
     Indication: EPILEPSY
  2. VALPROATE SODIUM [Concomitant]
     Indication: EPILEPSY
     Dosage: 1G TWICE PER DAY
     Route: 048
  3. MOVICOL [Concomitant]
     Indication: CONSTIPATION
     Dosage: 1SAC IN THE MORNING
     Route: 048
  4. GAVISCON [Concomitant]
     Route: 048
  5. DIAZEPAM [Concomitant]
     Indication: EPILEPSY
     Route: 054

REACTIONS (4)
  - ABASIA [None]
  - ANTICONVULSANT DRUG LEVEL ABOVE THERAPEUTIC [None]
  - DYSPNOEA [None]
  - PERFORMANCE STATUS DECREASED [None]
